APPROVED DRUG PRODUCT: FONDAPARINUX SODIUM
Active Ingredient: FONDAPARINUX SODIUM
Strength: 5MG/0.4ML
Dosage Form/Route: SOLUTION;SUBCUTANEOUS
Application: A208615 | Product #002 | TE Code: AP
Applicant: SCINOPHARM TAIWAN LTD
Approved: Nov 14, 2018 | RLD: No | RS: No | Type: RX